FAERS Safety Report 8140490-4 (Version None)
Quarter: 2012Q1

REPORT INFORMATION
  Report Type: 
  Country: None (occurrence: None)
  Receive Date: 20120216
  Receipt Date: 20120213
  Transmission Date: 20120608
  Serious: Yes (Other)
  Sender: FDA-Public Use
  Company Number: US-PFIZER INC-2012038838

PATIENT
  Sex: Male
  Weight: 81.6 kg

DRUGS (2)
  1. LYRICA [Suspect]
     Dosage: UNK
     Route: 048
     Dates: end: 20120101
  2. LYRICA [Suspect]
     Indication: DIABETIC NEUROPATHY
     Dosage: UNK, 2X/DAY
     Route: 048
     Dates: start: 20070101

REACTIONS (3)
  - CARDIAC DISORDER [None]
  - PARAESTHESIA [None]
  - PAIN IN EXTREMITY [None]
